FAERS Safety Report 22255201 (Version 1)
Quarter: 2023Q2

REPORT INFORMATION
  Report Type: Spontaneous
  Country: US (occurrence: None)
  Receive Date: 20230424
  Receipt Date: 20230424
  Transmission Date: 20230721
  Serious: No
  Sender: FDA-Public Use
  Company Number: None

PATIENT
  Sex: Female

DRUGS (1)
  1. TALTZ [Suspect]
     Active Substance: IXEKIZUMAB
     Indication: Psoriasis
     Dosage: 80MG EVERY 28 DAYS SUBCUTANEOUS ?
     Route: 058
     Dates: start: 202201

REACTIONS (3)
  - Psoriasis [None]
  - Wrong technique in product usage process [None]
  - Device defective [None]
